FAERS Safety Report 23414172 (Version 1)
Quarter: 2024Q1

REPORT INFORMATION
  Report Type: Report from Study
  Country: US (occurrence: US)
  Receive Date: 20240117
  Receipt Date: 20240117
  Transmission Date: 20240409
  Serious: Yes (Hospitalization, Other)
  Sender: FDA-Public Use
  Company Number: US-JNJFOC-20231248811

PATIENT
  Age: 31 Year
  Sex: Male
  Weight: 120 kg

DRUGS (2)
  1. EPOPROSTENOL SODIUM [Suspect]
     Active Substance: EPOPROSTENOL SODIUM
     Indication: Pulmonary hypertension
     Dosage: VELETRI 1.5MG VIAL INTRAVENOUS
     Route: 042
  2. ELIQUIS [Concomitant]
     Active Substance: APIXABAN

REACTIONS (7)
  - Device occlusion [Unknown]
  - Thrombosis in device [Unknown]
  - Device alarm issue [Unknown]
  - Catheter site discolouration [Unknown]
  - Product administration interrupted [Unknown]
  - Catheter site bruise [Unknown]
  - Underdose [Unknown]

NARRATIVE: CASE EVENT DATE: 20240104
